FAERS Safety Report 21402068 (Version 1)
Quarter: 2022Q4

REPORT INFORMATION
  Report Type: Other
  Country: None (occurrence: FR)
  Receive Date: 20221003
  Receipt Date: 20221003
  Transmission Date: 20230113
  Serious: Yes (Congenital Anomaly, Other)
  Sender: FDA-Public Use
  Company Number: FR-MLV Pharma LLC-2133401

PATIENT
  Sex: Male
  Weight: 1.065 kg

DRUGS (1)
  1. BETAMETHASONE DIPROPIONATE [Suspect]
     Active Substance: BETAMETHASONE DIPROPIONATE
     Indication: Maternal therapy to enhance foetal lung maturity
     Route: 065

REACTIONS (3)
  - Hyperinsulinism [Recovered/Resolved]
  - Hypoglycaemia [Recovered/Resolved]
  - Cortisol decreased [Unknown]
